FAERS Safety Report 23398941 (Version 2)
Quarter: 2024Q1

REPORT INFORMATION
  Report Type: Spontaneous
  Country: CZ (occurrence: CZ)
  Receive Date: 20240112
  Receipt Date: 20240124
  Transmission Date: 20240410
  Serious: Yes (Other)
  Sender: FDA-Public Use
  Company Number: CZ-GILEAD-2024-0658259

PATIENT
  Age: 49 Year
  Sex: Female

DRUGS (3)
  1. YESCARTA [Suspect]
     Active Substance: AXICABTAGENE CILOLEUCEL
     Indication: Diffuse large B-cell lymphoma
     Dosage: UNK
     Route: 065
     Dates: start: 20231114, end: 20231114
  2. FLUDARABINE [Concomitant]
     Active Substance: FLUDARABINE PHOSPHATE
     Indication: Lymphodepletion
     Dosage: UNK
     Dates: start: 20231109
  3. CYCLOPHOSPHAMIDE [Concomitant]
     Active Substance: CYCLOPHOSPHAMIDE
     Indication: Lymphodepletion
     Dosage: UNK
     Dates: start: 20231109

REACTIONS (3)
  - Neutrophil count decreased [Recovering/Resolving]
  - Thrombocytopenia [Recovering/Resolving]
  - Cytokine release syndrome [Unknown]

NARRATIVE: CASE EVENT DATE: 20231101
